FAERS Safety Report 7250935-X (Version None)
Quarter: 2011Q1

REPORT INFORMATION
  Report Type: 
  Country: None (occurrence: None)
  Receive Date: 20110128
  Receipt Date: 20110124
  Transmission Date: 20110831
  Serious: Yes (Other)
  Sender: FDA-Public Use
  Company Number: A0909647A

PATIENT
  Sex: Female

DRUGS (1)
  1. WELLBUTRIN SR [Suspect]
     Indication: ILL-DEFINED DISORDER
     Route: 045

REACTIONS (3)
  - INTENTIONAL DRUG MISUSE [None]
  - SINUS HEADACHE [None]
  - INCORRECT ROUTE OF DRUG ADMINISTRATION [None]
